FAERS Safety Report 8061449-1 (Version None)
Quarter: 2012Q1

REPORT INFORMATION
  Report Type: 
  Country: None (occurrence: None)
  Receive Date: 20120120
  Receipt Date: 20111109
  Transmission Date: 20120608
  Serious: No
  Sender: FDA-Public Use
  Company Number: US-ALLERGAN-1114707US

PATIENT
  Sex: Female

DRUGS (3)
  1. RESTASIS [Suspect]
     Indication: DRY EYE
     Dosage: 2 GTT, BID
     Route: 047
     Dates: start: 20110701
  2. FLUOROMETHOLONE [Concomitant]
     Indication: EYE INFECTION
     Dosage: 2 GTT, QAM
     Route: 047
  3. SYSTANE [Concomitant]
     Indication: EYE PAIN
     Dosage: 2 GTT, BID
     Route: 047

REACTIONS (3)
  - SCLERAL HYPERAEMIA [None]
  - EYE PAIN [None]
  - EYE IRRITATION [None]
